FAERS Safety Report 14742613 (Version 1)
Quarter: 2018Q2

REPORT INFORMATION
  Report Type: Report from Study
  Country: US (occurrence: US)
  Receive Date: 20180410
  Receipt Date: 20180410
  Transmission Date: 20180711
  Serious: Yes (Hospitalization)
  Sender: FDA-Public Use
  Company Number: US-GILEAD-2018-0331044

PATIENT
  Age: 58 Year
  Sex: Female

DRUGS (21)
  1. ULTRAM [Concomitant]
     Active Substance: TRAMADOL HYDROCHLORIDE
  2. HALDOL [Concomitant]
     Active Substance: HALOPERIDOL
  3. COMBIVENT [Concomitant]
     Active Substance: ALBUTEROL SULFATE\IPRATROPIUM BROMIDE
  4. TEMAZEPAM. [Concomitant]
     Active Substance: TEMAZEPAM
  5. LORATADINE. [Concomitant]
     Active Substance: LORATADINE
  6. AMBRISENTAN [Suspect]
     Active Substance: AMBRISENTAN
     Indication: PULMONARY ARTERIAL HYPERTENSION
     Dosage: 5 MG, QD
     Route: 048
     Dates: start: 20171201
  7. REMERON [Concomitant]
     Active Substance: MIRTAZAPINE
  8. DIGOXIN. [Concomitant]
     Active Substance: DIGOXIN
  9. DEMADEX [Concomitant]
     Active Substance: TORSEMIDE
  10. K-TAB [Concomitant]
     Active Substance: POTASSIUM CHLORIDE
  11. MOTRIN [Concomitant]
     Active Substance: IBUPROFEN
  12. PEPCID                             /00305201/ [Concomitant]
     Active Substance: ALUMINUM HYDROXIDE\MAGNESIUM CARBONATE
  13. HYDROXYZINE [Concomitant]
     Active Substance: HYDROXYZINE HYDROCHLORIDE
  14. LOMOTIL [Concomitant]
     Active Substance: ATROPINE SULFATE\DIPHENOXYLATE HYDROCHLORIDE
  15. REMODULIN [Suspect]
     Active Substance: TREPROSTINIL
     Indication: PRODUCT USED FOR UNKNOWN INDICATION
     Route: 065
  16. MARINOL                            /00003301/ [Concomitant]
     Active Substance: ALLOPURINOL
  17. ZOFRAN [Concomitant]
     Active Substance: ONDANSETRON HYDROCHLORIDE
  18. TESSALON [Concomitant]
     Active Substance: BENZONATATE
  19. ALBUTEROL                          /00139501/ [Concomitant]
     Active Substance: ALBUTEROL
  20. SYMBICORT [Concomitant]
     Active Substance: BUDESONIDE\FORMOTEROL FUMARATE DIHYDRATE
  21. FLONASE                            /00908302/ [Concomitant]
     Active Substance: MOMETASONE FUROATE

REACTIONS (2)
  - Vomiting [Unknown]
  - Diarrhoea [Unknown]

NARRATIVE: CASE EVENT DATE: 20180317
